FAERS Safety Report 20471821 (Version 2)
Quarter: 2022Q1

REPORT INFORMATION
  Report Type: Report from Study
  Country: US (occurrence: US)
  Receive Date: 20220214
  Receipt Date: 20220221
  Transmission Date: 20220423
  Serious: Yes (Hospitalization, Other)
  Sender: FDA-Public Use
  Company Number: US-BAUSCH-BL-2022-000647

PATIENT
  Age: 68 Year
  Sex: Male
  Weight: 98.693 kg

DRUGS (21)
  1. XIFAXAN [Suspect]
     Active Substance: RIFAXIMIN
     Indication: Confusional state
     Dosage: 11 REFILLS
     Route: 048
     Dates: start: 202104
  2. XIFAXAN [Suspect]
     Active Substance: RIFAXIMIN
     Indication: Hepatic encephalopathy
  3. FOLIC ACID [Concomitant]
     Active Substance: FOLIC ACID
     Indication: Product used for unknown indication
     Route: 048
  4. LASIX [Concomitant]
     Active Substance: FUROSEMIDE
     Indication: Ascites
     Route: 048
  5. GABAPENTIN [Concomitant]
     Active Substance: GABAPENTIN
     Indication: Product used for unknown indication
     Route: 048
  6. HYDROXYZINE HYDROCHLORIDE [Concomitant]
     Active Substance: HYDROXYZINE HYDROCHLORIDE
     Indication: Product used for unknown indication
     Dosage: BEDTIME PRN
     Route: 048
  7. FERROUS SULFATE ANHYDROUS [Concomitant]
     Active Substance: FERROUS SULFATE ANHYDROUS
     Indication: Product used for unknown indication
     Route: 048
  8. LACTULOSE [Concomitant]
     Active Substance: LACTULOSE
     Indication: Hepatic encephalopathy
     Dosage: 10G/15ML, 20MG EQUAL TO 30 ML, BID
     Route: 048
  9. LACTULOSE [Concomitant]
     Active Substance: LACTULOSE
     Dosage: 10G/15ML, 20MG EQUAL TO 30 ML, TID
     Route: 048
  10. LEXAPRO [Concomitant]
     Active Substance: ESCITALOPRAM OXALATE
     Indication: Product used for unknown indication
     Route: 048
  11. PANTOPRAZOLE [Concomitant]
     Active Substance: PANTOPRAZOLE
     Indication: Chronic gastritis
     Route: 048
  12. POTASSIUM CHLORIDE [Concomitant]
     Active Substance: POTASSIUM CHLORIDE
     Indication: Product used for unknown indication
     Dosage: EXTENDED RELEASE TABLET
     Route: 048
  13. PRAMIPEXOLE [Concomitant]
     Active Substance: PRAMIPEXOLE
     Indication: Product used for unknown indication
     Route: 048
  14. PROAIR HFA [Concomitant]
     Active Substance: ALBUTEROL SULFATE
     Indication: Product used for unknown indication
     Dosage: 90 MCG/INH INHALATION AEROSOL WITH ADAPTER, 2 PUFF, INHALER, Q4H, PRN
  15. PROPRANOLOL [Concomitant]
     Active Substance: PROPRANOLOL HYDROCHLORIDE
     Indication: Product used for unknown indication
     Route: 048
  16. ROPINIROLE [Concomitant]
     Active Substance: ROPINIROLE
     Indication: Product used for unknown indication
     Dosage: 2 MG BEDTIME PRN
     Route: 048
  17. SILDENAFIL [Concomitant]
     Active Substance: SILDENAFIL
     Indication: Product used for unknown indication
     Route: 048
  18. TRAZODONE [Concomitant]
     Active Substance: TRAZODONE HYDROCHLORIDE
     Indication: Product used for unknown indication
     Dosage: BEDTIME PRN
     Route: 048
  19. VITAMIN B12 [Concomitant]
     Active Substance: CYANOCOBALAMIN
     Indication: Product used for unknown indication
     Route: 048
  20. ZINC SULFATE [Concomitant]
     Active Substance: ZINC SULFATE
     Indication: Hepatic encephalopathy
     Route: 048
  21. ALDACTONE [Concomitant]
     Active Substance: SPIRONOLACTONE
     Indication: Ascites

REACTIONS (7)
  - Hepatic encephalopathy [Not Recovered/Not Resolved]
  - Condition aggravated [Not Recovered/Not Resolved]
  - Confusional state [Not Recovered/Not Resolved]
  - Anaemia [Not Recovered/Not Resolved]
  - Dyspnoea exertional [Unknown]
  - Skin lesion [Not Recovered/Not Resolved]
  - Fatigue [Not Recovered/Not Resolved]

NARRATIVE: CASE EVENT DATE: 20210101
